FAERS Safety Report 21459326 (Version 2)
Quarter: 2023Q1

REPORT INFORMATION
  Report Type: Spontaneous
  Country: US (occurrence: US)
  Receive Date: 20221014
  Receipt Date: 20230111
  Transmission Date: 20230417
  Serious: Yes (Other)
  Sender: FDA-Public Use
  Company Number: US-JNJFOC-20221014759

PATIENT
  Age: 51 Year
  Sex: Male

DRUGS (1)
  1. REMICADE [Suspect]
     Active Substance: INFLIXIMAB
     Indication: Crohn^s disease
     Dosage: FOR 14 YEARS
     Route: 041

REACTIONS (4)
  - Respiratory failure [Recovering/Resolving]
  - Crohn^s disease [Not Recovered/Not Resolved]
  - Infusion related reaction [Recovering/Resolving]
  - Hypotension [Recovering/Resolving]
